FAERS Safety Report 5871417-3 (Version None)
Quarter: 2008Q3

REPORT INFORMATION
  Report Type: 
  Country: None (occurrence: None)
  Receive Date: 20080905
  Receipt Date: 20080124
  Transmission Date: 20090109
  Serious: No
  Sender: FDA-Public Use
  Company Number: A0704133A

PATIENT
  Age: 62 Year
  Sex: Female

DRUGS (4)
  1. REQUIP [Suspect]
     Indication: RESTLESS LEGS SYNDROME
     Dosage: 1MG PER DAY
     Route: 048
     Dates: start: 20060601, end: 20080115
  2. LISINOPRIL [Concomitant]
  3. RALOXIFENE HCL [Concomitant]
  4. ALEVE [Concomitant]

REACTIONS (4)
  - ARTHRALGIA [None]
  - CHILLS [None]
  - DYSPEPSIA [None]
  - NEURALGIA [None]
